FAERS Safety Report 14958804 (Version 1)
Quarter: 2018Q2

REPORT INFORMATION
  Report Type: Spontaneous
  Country: US (occurrence: US)
  Receive Date: 20180510
  Receipt Date: 20180510
  Transmission Date: 20180711
  Serious: Yes (Hospitalization)
  Sender: FDA-Public Use
  Company Number: None

PATIENT
  Age: 62 Year
  Sex: Male

DRUGS (6)
  1. MIRTAZAPINE. [Suspect]
     Active Substance: MIRTAZAPINE
  2. MIRTAZAPINE. [Suspect]
     Active Substance: MIRTAZAPINE
  3. MIRTAZAPINE. [Suspect]
     Active Substance: MIRTAZAPINE
     Indication: INSOMNIA
  4. MIRTAZAPINE. [Suspect]
     Active Substance: MIRTAZAPINE
     Indication: INSOMNIA
     Route: 048
     Dates: start: 20180409, end: 20180416
  5. MIRTAZAPINE. [Suspect]
     Active Substance: MIRTAZAPINE
     Indication: DEPRESSION
     Route: 048
     Dates: start: 20180409, end: 20180416
  6. MIRTAZAPINE. [Suspect]
     Active Substance: MIRTAZAPINE

REACTIONS (7)
  - Tremor [None]
  - Muscle rigidity [None]
  - Drug effect decreased [None]
  - Agitation [None]
  - Hallucination [None]
  - Headache [None]
  - Seizure [None]

NARRATIVE: CASE EVENT DATE: 20180416
